FAERS Safety Report 14150824 (Version 3)
Quarter: 2017Q4

REPORT INFORMATION
  Report Type: Spontaneous
  Country: JP (occurrence: JP)
  Receive Date: 20171102
  Receipt Date: 20171130
  Transmission Date: 20180321
  Serious: Yes (Life-Threatening, Hospitalization, Other)
  Sender: FDA-Public Use
  Company Number: JP-CONCORDIA PHARMACEUTICALS INC.-E2B_00008455

PATIENT
  Age: 80 Year
  Sex: Male

DRUGS (7)
  1. AZATHIOPRINE. [Suspect]
     Active Substance: AZATHIOPRINE
     Indication: COLITIS ULCERATIVE
  2. PREDNISOLONE. [Suspect]
     Active Substance: PREDNISOLONE
     Dosage: TAPERED DOSES
     Route: 048
  3. 5-AMINOSALICYLIC ACID [Concomitant]
     Active Substance: MESALAMINE
     Indication: COLITIS ULCERATIVE
  4. PREDNISOLONE. [Suspect]
     Active Substance: PREDNISOLONE
     Dosage: APPROXIMATELY 1 MG/KG
     Route: 042
  5. PREDNISOLONE. [Suspect]
     Active Substance: PREDNISOLONE
     Dosage: APPROXIMATELY 0.5 MG/KG
     Route: 048
  6. PREDNISOLONE. [Suspect]
     Active Substance: PREDNISOLONE
     Indication: COLITIS ULCERATIVE
     Dosage: APPROXIMATELY 0.3 MG/KG
     Route: 048
  7. GANCICLOVIR. [Concomitant]
     Active Substance: GANCICLOVIR
     Indication: ANTIVIRAL PROPHYLAXIS

REACTIONS (6)
  - Gastroenteritis bacterial [Recovered/Resolved]
  - Aspergilloma [Recovered/Resolved]
  - Candida sepsis [Recovered/Resolved]
  - Listeria sepsis [Recovered/Resolved]
  - Meningitis listeria [Recovered/Resolved]
  - Listeriosis [Recovered/Resolved]
